FAERS Safety Report 9010693 (Version 1)
Quarter: 2013Q1

REPORT INFORMATION
  Report Type: Spontaneous
  Country: US (occurrence: US)
  Receive Date: 20130109
  Receipt Date: 20130109
  Transmission Date: 20140127
  Serious: Yes (Other)
  Sender: FDA-Public Use
  Company Number: US-UCBSA-074442

PATIENT
  Sex: Male

DRUGS (3)
  1. LORTAB [Suspect]
     Indication: PAIN
     Dosage: 10/500 MG
  2. NORCO [Concomitant]
  3. LORTAB [Concomitant]
     Dosage: 7.5/500 MG

REACTIONS (2)
  - Hepatic enzyme increased [Unknown]
  - Constipation [Unknown]
